FAERS Safety Report 7081234-7 (Version None)
Quarter: 2010Q4

REPORT INFORMATION
  Report Type: 
  Country: None (occurrence: None)
  Receive Date: 20101103
  Receipt Date: 20100428
  Transmission Date: 20110411
  Serious: Yes (Other)
  Sender: FDA-Public Use
  Company Number: US-BAYER-201013286NA

PATIENT
  Sex: Female
  Weight: 54 kg

DRUGS (32)
  1. YASMIN [Suspect]
     Indication: MENORRHAGIA
     Route: 048
     Dates: start: 20071204, end: 20071201
  2. YASMIN [Suspect]
     Route: 048
     Dates: start: 20081028, end: 20081201
  3. YAZ [Suspect]
     Indication: MENORRHAGIA
     Route: 048
     Dates: start: 20080101, end: 20081028
  4. DROSPIRENONE AND ETHINYL ESTRADIOL [Suspect]
     Indication: MENORRHAGIA
     Route: 048
     Dates: start: 20081101, end: 20091101
  5. CLINDESSE [Concomitant]
     Dosage: WITH REFILL 3 MONTHS
     Route: 061
     Dates: start: 20080101
  6. LOESTRIN 24 FE [Concomitant]
     Indication: ORAL CONTRACEPTION
     Route: 048
     Dates: start: 20091217
  7. CELEXA [Concomitant]
  8. LEXAPRO [Concomitant]
  9. NORVASC [Concomitant]
  10. ACYCLOVIR SODIUM [Concomitant]
     Dates: start: 20080201
  11. ACYCLOVIR SODIUM [Concomitant]
     Dates: start: 20081201
  12. AMOXICILLIN [Concomitant]
     Dates: start: 20081201
  13. CELEXA [Concomitant]
     Dates: start: 20081201
  14. DICYCLOMINE [Concomitant]
     Dates: start: 20080901
  15. DICYCLOMINE [Concomitant]
     Dates: start: 20081201
  16. PRENATAL VITAMINS [Concomitant]
  17. DIFLUCAN [Concomitant]
     Dates: start: 20080901, end: 20081201
  18. DOXYCYCLINE HYCLATE [Concomitant]
     Dates: start: 20080901, end: 20081201
  19. FISH OIL [Concomitant]
     Dates: start: 20081201
  20. HYDROCOD APAP [Concomitant]
     Dates: start: 20080201
  21. CYCLOBENZAPRINE [Concomitant]
     Dates: start: 20080301
  22. NATACAPS [Concomitant]
     Dates: start: 20080801
  23. DOXYCYCLINE [Concomitant]
     Dates: start: 20080801
  24. TETRIX [Concomitant]
     Dates: start: 20090101
  25. MIMYX [Concomitant]
  26. FLUTICASONE PROPIONATE [Concomitant]
     Dates: start: 20080201
  27. CEPHALEXIN [Concomitant]
     Dates: start: 20080201
  28. CITALOPRAM HYDROBROMIDE [Concomitant]
     Dates: start: 20080801
  29. FLUCONAZOLE [Concomitant]
     Dates: start: 20080801
  30. FEXOFENADINE HCL [Concomitant]
     Dates: start: 20090101
  31. FLUZONE [Concomitant]
     Dates: start: 20080901
  32. TRIAMCINOLONE [Concomitant]
     Dates: start: 20090101

REACTIONS (3)
  - ABDOMINAL PAIN UPPER [None]
  - CHOLECYSTITIS CHRONIC [None]
  - CHOLELITHIASIS [None]
